FAERS Safety Report 13857916 (Version 6)
Quarter: 2018Q2

REPORT INFORMATION
  Report Type: Spontaneous
  Country: FR (occurrence: FR)
  Receive Date: 20170811
  Receipt Date: 20180406
  Transmission Date: 20180711
  Serious: Yes (Life-Threatening, Hospitalization)
  Sender: FDA-Public Use
  Company Number: PHHY2017FR118114

PATIENT
  Age: 37 Year
  Sex: Female
  Weight: 65 kg

DRUGS (3)
  1. IBUPROFEN. [Concomitant]
     Active Substance: IBUPROFEN
     Indication: PAIN
     Dosage: OCCASIONALLY
     Route: 048
  2. GILENYA [Suspect]
     Active Substance: FINGOLIMOD HYDROCHLORIDE
     Indication: MULTIPLE SCLEROSIS
     Dosage: 0.5 MG, QD
     Route: 048
     Dates: start: 20170504, end: 20170809
  3. TWYNSTA [Suspect]
     Active Substance: AMLODIPINE BESYLATE\TELMISARTAN
     Indication: HYPERTENSION
     Dosage: QD LONG TERM
     Route: 048

REACTIONS (6)
  - Angina pectoris [Unknown]
  - Myocardial infarction [Recovered/Resolved with Sequelae]
  - Ventricular hypokinesia [Unknown]
  - Chest discomfort [Unknown]
  - Pain in extremity [Unknown]
  - Chest pain [Unknown]

NARRATIVE: CASE EVENT DATE: 20170804
